FAERS Safety Report 8247886-0 (Version None)
Quarter: 2012Q1

REPORT INFORMATION
  Report Type: 
  Country: None (occurrence: None)
  Receive Date: 20120330
  Receipt Date: 20120321
  Transmission Date: 20120608
  Serious: Yes (Other)
  Sender: FDA-Public Use
  Company Number: JP-MERCK-1203USA01266

PATIENT
  Age: 74 Year
  Sex: Male

DRUGS (4)
  1. JANUVIA [Suspect]
     Indication: DIABETES MELLITUS
     Route: 048
     Dates: start: 20120110, end: 20120202
  2. METFORMIN HCL [Concomitant]
     Indication: DIABETES MELLITUS
     Route: 048
     Dates: start: 20111206
  3. DEPAKENE [Concomitant]
     Indication: CONVULSION PROPHYLAXIS
     Route: 048
     Dates: start: 20111206
  4. KINEDAK [Concomitant]
     Indication: DIABETIC NEUROPATHY
     Route: 048
     Dates: start: 20111206

REACTIONS (1)
  - LIVER DISORDER [None]
